FAERS Safety Report 23803683 (Version 1)
Quarter: 2024Q2

REPORT INFORMATION
  Report Type: Spontaneous
  Country: JP (occurrence: JP)
  Receive Date: 20240501
  Receipt Date: 20240501
  Transmission Date: 20240717
  Serious: Yes (Hospitalization)
  Sender: FDA-Public Use
  Company Number: JP-DSJP-DSJ-2024-117977

PATIENT
  Age: 75 Year
  Sex: Female

DRUGS (1)
  1. DENOSUMAB [Suspect]
     Active Substance: DENOSUMAB
     Indication: Osteoporosis
     Dosage: UNK UNK, QD
     Route: 065
     Dates: start: 2023, end: 2023

REACTIONS (2)
  - Malnutrition [Not Recovered/Not Resolved]
  - Adjusted calcium increased [Not Recovered/Not Resolved]

NARRATIVE: CASE EVENT DATE: 20231101
